FAERS Safety Report 8283579-1 (Version None)
Quarter: 2012Q2

REPORT INFORMATION
  Report Type: 
  Country: None (occurrence: None)
  Receive Date: 20120413
  Receipt Date: 20120411
  Transmission Date: 20120825
  Serious: Yes (Hospitalization)
  Sender: FDA-Public Use
  Company Number: JP-NAPPMUNDI-MAG-2011-0001993

PATIENT
  Sex: Male

DRUGS (16)
  1. OXYCODONE HCL [Suspect]
     Dosage: 80 MG, DAILY
     Route: 048
     Dates: start: 20110817, end: 20110823
  2. OXYCODONE HCL [Suspect]
     Dosage: 5 MG, DAILY
     Route: 048
     Dates: start: 20110727, end: 20110816
  3. OXYCODONE HCL [Suspect]
     Dosage: 10 MG, DAILY
     Route: 048
     Dates: start: 20110817, end: 20110823
  4. OXYCODONE HCL [Suspect]
     Indication: CANCER PAIN
     Dosage: 120 MG, DAILY
     Route: 048
     Dates: start: 20110903, end: 20110907
  5. GEMZAR [Suspect]
     Indication: CONSTIPATION
     Dosage: UNK
     Route: 042
     Dates: end: 20110817
  6. MAGNESIUM SULFATE [Concomitant]
     Indication: CONSTIPATION
     Dosage: UNK
     Route: 048
  7. DECADRON [Concomitant]
     Dosage: UNK
     Route: 065
     Dates: start: 20110727, end: 20110817
  8. PRIMPERAN TAB [Concomitant]
     Indication: NAUSEA
     Dosage: UNK
     Route: 048
     Dates: start: 20110903
  9. OXYCODONE HCL [Suspect]
     Dosage: 100 MG, DAILY
     Route: 048
     Dates: start: 20110824, end: 20110902
  10. DIOVAN [Concomitant]
     Route: 048
  11. FAMOTIDINE [Concomitant]
     Indication: PROPHYLAXIS
  12. WARFARIN SODIUM [Concomitant]
     Indication: THROMBOSIS PROPHYLAXIS
     Dosage: UNK
     Route: 048
     Dates: start: 20110825
  13. SOLDEM 3A [Concomitant]
     Indication: EMBOLISM
     Dosage: UNK
     Dates: start: 20110824, end: 20110828
  14. OXYCODONE HCL [Suspect]
     Dosage: 40 MG, DAILY
     Route: 048
     Dates: start: 20110727, end: 20110816
  15. OXYCODONE HCL [Suspect]
     Indication: CANCER PAIN
     Dosage: 20 MG, DAILY
     Route: 048
     Dates: start: 20110824
  16. HYPEN                              /00613801/ [Concomitant]
     Indication: CANCER PAIN
     Route: 048

REACTIONS (3)
  - CONSTIPATION [None]
  - NAUSEA [None]
  - EMBOLISM [None]
